FAERS Safety Report 19468932 (Version 1)
Quarter: 2021Q2

REPORT INFORMATION
  Report Type: Spontaneous
  Country: JP (occurrence: JP)
  Receive Date: 20210628
  Receipt Date: 20210628
  Transmission Date: 20210717
  Serious: Yes (Hospitalization)
  Sender: FDA-Public Use
  Company Number: JP-ELI_LILLY_AND_COMPANY-JP202103000006

PATIENT
  Age: 79 Year
  Sex: Male

DRUGS (6)
  1. LEUCOVORIN CALCIUM. [Concomitant]
     Active Substance: LEUCOVORIN CALCIUM
     Indication: COLON CANCER
     Dosage: UNK
     Route: 041
     Dates: start: 20201015
  2. FLUOROURACIL. [Concomitant]
     Active Substance: FLUOROURACIL
     Indication: COLON CANCER
     Dosage: UNK
     Route: 041
     Dates: start: 20201015
  3. CYRAMZA [Suspect]
     Active Substance: RAMUCIRUMAB
     Indication: COLON CANCER
     Dosage: 8 MG/KG
     Route: 041
     Dates: start: 20201015, end: 20201029
  4. CELECOX [Suspect]
     Active Substance: CELECOXIB
     Indication: FRACTURE PAIN
     Dosage: UNK
     Route: 065
     Dates: start: 202011
  5. IRINOTECAN [IRINOTECAN HYDROCHLORIDE] [Suspect]
     Active Substance: IRINOTECAN HYDROCHLORIDE
     Indication: COLON CANCER
     Dosage: 120 MG/M2
     Route: 041
     Dates: start: 20201015, end: 20201029
  6. LOXONIN [Suspect]
     Active Substance: LOXOPROFEN SODIUM
     Indication: FRACTURE PAIN
     Dosage: UNK UNK, PRN
     Route: 065
     Dates: start: 202011

REACTIONS (5)
  - Diarrhoea [Recovered/Resolved]
  - Rib fracture [Recovered/Resolved]
  - Duodenal perforation [Recovered/Resolved]
  - Dehydration [Recovered/Resolved]
  - Fall [Recovered/Resolved]

NARRATIVE: CASE EVENT DATE: 20201105
